FAERS Safety Report 19672396 (Version 2)
Quarter: 2021Q3

REPORT INFORMATION
  Report Type: Spontaneous
  Country: GB (occurrence: GB)
  Receive Date: 20210808
  Receipt Date: 20210810
  Transmission Date: 20211014
  Serious: Yes (Other)
  Sender: FDA-Public Use
  Company Number: GB-JNJFOC-20210800083

PATIENT
  Sex: Female

DRUGS (1)
  1. REGAINE UNSPECIFIED [Suspect]
     Active Substance: MINOXIDIL
     Indication: PRODUCT USED FOR UNKNOWN INDICATION
     Dosage: FOR WOMAN 2%.
     Route: 061

REACTIONS (5)
  - Angina pectoris [Not Recovered/Not Resolved]
  - Hypervigilance [Not Recovered/Not Resolved]
  - Hyperacusis [Not Recovered/Not Resolved]
  - Palpitations [Not Recovered/Not Resolved]
  - Irritability [Not Recovered/Not Resolved]

NARRATIVE: CASE EVENT DATE: 202106
